FAERS Safety Report 6148578-4 (Version None)
Quarter: 2009Q2

REPORT INFORMATION
  Report Type: 
  Country: None (occurrence: None)
  Receive Date: 20090406
  Receipt Date: 20090406
  Transmission Date: 20091009
  Serious: Yes (Other)
  Sender: FDA-Public Use
  Company Number: None

PATIENT
  Age: 61 Year
  Sex: Female
  Weight: 90.7194 kg

DRUGS (1)
  1. CRESTOR 10 MG ASTRAZENENECA [Suspect]
     Indication: BLOOD CHOLESTEROL INCREASED
     Dosage: 10MG 1 TABLET EVERY DAY PO
     Route: 048
     Dates: start: 20080731, end: 20090227

REACTIONS (1)
  - HIGH DENSITY LIPOPROTEIN DECREASED [None]
